FAERS Safety Report 7339730-0 (Version None)
Quarter: 2011Q1

REPORT INFORMATION
  Report Type: 
  Country: None (occurrence: None)
  Receive Date: 20110303
  Receipt Date: 20110303
  Transmission Date: 20110831
  Serious: Yes (Hospitalization)
  Sender: FDA-Public Use
  Company Number: None

PATIENT
  Sex: Male
  Weight: 92.67 kg

DRUGS (2)
  1. PREDNISONE [Suspect]
     Dosage: 140 MG
  2. TAXOTERE [Suspect]
     Dosage: 162 MG
     Dates: end: 20110118

REACTIONS (4)
  - ABSCESS INTESTINAL [None]
  - DIVERTICULITIS [None]
  - COLITIS [None]
  - INFECTION [None]
